FAERS Safety Report 4390665-5 (Version None)
Quarter: 2004Q3

REPORT INFORMATION
  Report Type: 
  Country: None (occurrence: None)
  Receive Date: 20040706
  Receipt Date: 20040616
  Transmission Date: 20050211
  Serious: Yes (Death, Hospitalization)
  Sender: FDA-Public Use
  Company Number: JP-MERCK-0406USA01772

PATIENT
  Age: 50 Year
  Sex: Male

DRUGS (4)
  1. COSMEGEN [Suspect]
     Indication: EWING'S SARCOMA
     Route: 051
  2. DOXORUBICIN HCL [Suspect]
     Indication: EWING'S SARCOMA
     Route: 042
  3. IFOSFAMIDE [Suspect]
     Route: 041
  4. VINCRISTINE SULFATE [Suspect]
     Indication: EWING'S SARCOMA
     Route: 042

REACTIONS (2)
  - DEATH [None]
  - NEUTROPHIL COUNT DECREASED [None]
